FAERS Safety Report 17742551 (Version 1)
Quarter: 2020Q2

REPORT INFORMATION
  Report Type: Spontaneous
  Country: US (occurrence: US)
  Receive Date: 20200505
  Receipt Date: 20200505
  Transmission Date: 20200714
  Serious: Yes (Other)
  Sender: FDA-Public Use
  Company Number: US-BION-008635

PATIENT
  Age: 74 Year
  Sex: Female
  Weight: 86.64 kg

DRUGS (10)
  1. XARELTO [Concomitant]
     Active Substance: RIVAROXABAN
     Indication: ANTICOAGULANT THERAPY
     Dosage: 20 MG ONCE DAILY
  2. MONTELUKAST [Concomitant]
     Active Substance: MONTELUKAST SODIUM
     Indication: SINUS DISORDER
     Dosage: 10 MG ONCE DAILY
  3. PRAVASTATIN. [Concomitant]
     Active Substance: PRAVASTATIN
     Indication: BLOOD CHOLESTEROL INCREASED
     Dosage: 40 MG TWICE DAILY
  4. CALCIUM [Concomitant]
     Active Substance: CALCIUM
     Dosage: 1200 UNITS PER DAY
  5. BION PHARMA^S DOFETILIDE 500 MCG UNSPECIFIED [Suspect]
     Active Substance: DOFETILIDE
     Indication: ATRIAL FIBRILLATION
     Dosage: STRENGTH: 500 MCG 1 CAPSULE TWICE A DAY
     Dates: start: 20200130
  6. QVAR [Concomitant]
     Active Substance: BECLOMETHASONE DIPROPIONATE
     Indication: ASTHMA
     Dosage: 80 MG PUFF TWICE A DAY
  7. VENTOLIN [Concomitant]
     Active Substance: ALBUTEROL SULFATE
     Indication: ASTHMA
     Dosage: 90 MG 2 PUFFS AS NEEDED UP TO 4 TIMES A DAY
  8. COLECALCIFEROL [Concomitant]
     Active Substance: CHOLECALCIFEROL
     Dosage: 500 UNITS ONCE DAILY
  9. METOPROLOL. [Concomitant]
     Active Substance: METOPROLOL
     Dosage: 25 MG ONCE DAILY
  10. SELEGILINE [Concomitant]
     Active Substance: SELEGILINE
     Indication: ANXIETY
     Dosage: 5 MG TABLETS, 2 TABLETS IN THE MORNING AND 1 TABLET IN THE EVENING

REACTIONS (6)
  - Atrial fibrillation [Not Recovered/Not Resolved]
  - Herpes zoster [Unknown]
  - Chest discomfort [Unknown]
  - Product substitution issue [Unknown]
  - Malaise [Unknown]
  - Nervousness [Unknown]

NARRATIVE: CASE EVENT DATE: 20200309
